FAERS Safety Report 20414853 (Version 2)
Quarter: 2022Q2

REPORT INFORMATION
  Report Type: Report from Study
  Country: IL (occurrence: IL)
  Receive Date: 20220202
  Receipt Date: 20220413
  Transmission Date: 20220721
  Serious: Yes (Hospitalization, Disabling, Other)
  Sender: FDA-Public Use
  Company Number: IL-KOREA IPSEN Pharma-2019-26073

PATIENT
  Age: 66 Year
  Sex: Female

DRUGS (10)
  1. LANREOTIDE ACETATE [Suspect]
     Active Substance: LANREOTIDE ACETATE
     Indication: Neuroendocrine tumour
     Dosage: 90 DEGREE ANGLE IN THE GLUTEUS
     Route: 058
     Dates: start: 20130512
  2. AMLODIPINE MALEATE [Concomitant]
     Active Substance: AMLODIPINE MALEATE
  3. HYDROCHLOROTHIAZIDE [Concomitant]
     Active Substance: HYDROCHLOROTHIAZIDE
     Dosage: 0.5 TABLET EVERY DAY
  4. VITAMIN D3 [Concomitant]
     Active Substance: CHOLECALCIFEROL
     Dosage: DH DRP 400 U 15 ML ?DOSE- 5 DROPS PER DAY (2000 IU IN DROPS)
  5. METFORMIN HYDROCHLORIDE [Concomitant]
     Active Substance: METFORMIN HYDROCHLORIDE
     Dosage: X2
  6. HYDROXYETHYLCELLULOSE [Concomitant]
     Dosage: DOSE-1 DROP
  7. LEVOTHYROXINE [Concomitant]
     Active Substance: LEVOTHYROXINE
  8. LEVOTHYROXINE [Concomitant]
     Active Substance: LEVOTHYROXINE
  9. SIMVASTATIN [Concomitant]
     Active Substance: SIMVASTATIN
  10. EMPAGLIFLOZIN\METFORMIN HYDROCHLORIDE [Concomitant]
     Active Substance: EMPAGLIFLOZIN\METFORMIN HYDROCHLORIDE
     Dosage: 12.5/850

REACTIONS (28)
  - Sialoadenitis [Not Recovered/Not Resolved]
  - Upper limb fracture [Recovered/Resolved]
  - Pleural effusion [Unknown]
  - Fall [Recovered/Resolved]
  - Diabetes mellitus [Not Recovered/Not Resolved]
  - Papillary thyroid cancer [Not Recovered/Not Resolved]
  - Deafness neurosensory [Recovered/Resolved]
  - Hypothyroidism [Not Recovered/Not Resolved]
  - Carcinoid tumour of the small bowel [Unknown]
  - Gallbladder operation [Unknown]
  - Carcinoid heart disease [Unknown]
  - Procedural complication [Unknown]
  - Vertigo positional [Recovered/Resolved]
  - Hepatic steatosis [Not Recovered/Not Resolved]
  - Swelling [Not Recovered/Not Resolved]
  - Liver disorder [Not Recovered/Not Resolved]
  - Vitamin D deficiency [Unknown]
  - Facial pain [Unknown]
  - Diarrhoea [Unknown]
  - Flushing [Unknown]
  - Frustration tolerance decreased [Unknown]
  - Condition aggravated [Unknown]
  - Malaise [Unknown]
  - Swelling face [Unknown]
  - Swelling [Unknown]
  - Facial pain [Unknown]
  - Dysphagia [Unknown]
  - Product prescribing issue [Unknown]

NARRATIVE: CASE EVENT DATE: 20130101
